FAERS Safety Report 4735890-6 (Version None)
Quarter: 2005Q3

REPORT INFORMATION
  Report Type: 
  Country: None (occurrence: None)
  Receive Date: 20050805
  Receipt Date: 20050721
  Transmission Date: 20060218
  Serious: Yes (Hospitalization, Other)
  Sender: FDA-Public Use
  Company Number: GR-AMGEN-UK143666

PATIENT
  Age: 48 Year
  Sex: Male

DRUGS (5)
  1. NEULASTA [Suspect]
     Indication: CHEMOTHERAPY
     Route: 030
     Dates: start: 20050708, end: 20050708
  2. CYCLOPHOSPHAMIDE [Concomitant]
     Route: 065
  3. DOXORUBICIN HCL [Concomitant]
     Route: 065
  4. VINCRISTINE [Concomitant]
     Route: 065
  5. PREDNISONE [Concomitant]
     Route: 065

REACTIONS (2)
  - CHILLS [None]
  - HYPERPYREXIA [None]
